FAERS Safety Report 11183703 (Version 1)
Quarter: 2015Q2

REPORT INFORMATION
  Report Type: Spontaneous
  Country: US (occurrence: None)
  Receive Date: 20150610
  Receipt Date: 20150610
  Transmission Date: 20150821
  Serious: No
  Sender: FDA-Public Use
  Company Number: None

PATIENT
  Age: 64 Year
  Sex: Female
  Weight: 55.34 kg

DRUGS (8)
  1. CLONAZEPAM. [Concomitant]
     Active Substance: CLONAZEPAM
  2. TRAZODONE [Concomitant]
     Active Substance: TRAZODONE HYDROCHLORIDE
  3. EFFEXOR [Concomitant]
     Active Substance: VENLAFAXINE HYDROCHLORIDE
  4. ALEVE [Concomitant]
     Active Substance: NAPROXEN SODIUM
  5. HARVONI [Suspect]
     Active Substance: LEDIPASVIR\SOFOSBUVIR
     Indication: HEPATITIS C
     Route: 048
     Dates: start: 20150307, end: 20150528
  6. OXYCODE [Concomitant]
  7. BENADRYL [Concomitant]
     Active Substance: DIPHENHYDRAMINE HYDROCHLORIDE
  8. INTERSTEM -KNEE-REPLACEMENT-LKLORCON [Concomitant]

REACTIONS (10)
  - Nightmare [None]
  - Ocular discomfort [None]
  - Arthralgia [None]
  - Personality change [None]
  - Angiopathy [None]
  - Contusion [None]
  - Vascular pain [None]
  - Sinus congestion [None]
  - Panic attack [None]
  - Vascular rupture [None]

NARRATIVE: CASE EVENT DATE: 20150307
